FAERS Safety Report 26101645 (Version 1)
Quarter: 2025Q4

REPORT INFORMATION
  Report Type: Spontaneous
  Country: US (occurrence: US)
  Receive Date: 20251128
  Receipt Date: 20251128
  Transmission Date: 20260117
  Serious: No
  Sender: TRIS PHARMA, INC.
  Company Number: US-TRIS PHARMA, INC.-25US012159

PATIENT
  Age: 6 Year

DRUGS (4)
  1. ONYDA XR [Suspect]
     Active Substance: CLONIDINE HYDROCHLORIDE
     Indication: Attention deficit hyperactivity disorder
     Dosage: 1 MILLILITRE, (MORNING) QD
  2. ONYDA XR [Suspect]
     Active Substance: CLONIDINE HYDROCHLORIDE
     Dosage: 0.5 MILLILITRE, QD
  3. UNSPECIFIED INGREDIENT [Concomitant]
     Active Substance: UNSPECIFIED INGREDIENT
     Indication: Attention deficit hyperactivity disorder
     Dosage: UNK
  4. UNSPECIFIED INGREDIENT [Concomitant]
     Active Substance: UNSPECIFIED INGREDIENT
     Indication: Behaviour disorder

REACTIONS (4)
  - Off label use [Unknown]
  - Product dose omission issue [Unknown]
  - Product contamination physical [Unknown]
  - Product administration error [Unknown]
